FAERS Safety Report 4564779-0 (Version None)
Quarter: 2005Q1

REPORT INFORMATION
  Report Type: 
  Country: None (occurrence: None)
  Receive Date: 20050128
  Receipt Date: 20040113
  Transmission Date: 20050727
  Serious: Yes (Hospitalization, Other)
  Sender: FDA-Public Use
  Company Number: US-ABBOTT-04P-163-0246943-00

PATIENT
  Sex: Male
  Weight: 70 kg

DRUGS (5)
  1. BIAXIN [Suspect]
     Indication: PNEUMONIA
     Route: 048
     Dates: start: 20031222
  2. PSEUDOEPHEDRINE HYDROCHLORIDE [Suspect]
     Indication: DRUG USE FOR UNKNOWN INDICATION
     Dates: start: 20031201, end: 20031225
  3. COLD CARE [Suspect]
     Indication: DRUG USE FOR UNKNOWN INDICATION
     Dates: start: 20031201, end: 20031225
  4. MULTI-VITAMINS [Concomitant]
     Indication: DRUG USE FOR UNKNOWN INDICATION
     Route: 048
     Dates: start: 20031227, end: 20031227
  5. IBUPROFEN [Concomitant]
     Indication: DRUG USE FOR UNKNOWN INDICATION
     Route: 048
     Dates: start: 20031227, end: 20031227

REACTIONS (24)
  - AGGRESSION [None]
  - ANXIETY [None]
  - ASTHENIA [None]
  - CATATONIA [None]
  - CONFUSIONAL STATE [None]
  - DEHYDRATION [None]
  - DEPRESSED MOOD [None]
  - DIZZINESS [None]
  - DYSKINESIA [None]
  - DYSPNOEA [None]
  - EUPHORIC MOOD [None]
  - EXCORIATION [None]
  - HALLUCINATION, AUDITORY [None]
  - HALLUCINATION, VISUAL [None]
  - HOMICIDAL IDEATION [None]
  - INSOMNIA [None]
  - NASAL CONGESTION [None]
  - PARANOIA [None]
  - PHOBIA [None]
  - PSYCHOTIC DISORDER [None]
  - SCHIZOAFFECTIVE DISORDER [None]
  - SCHIZOTYPAL PERSONALITY DISORDER [None]
  - SELF-INJURIOUS IDEATION [None]
  - SINUSITIS [None]
